FAERS Safety Report 6961408-3 (Version None)
Quarter: 2010Q3

REPORT INFORMATION
  Report Type: 
  Country: None (occurrence: None)
  Receive Date: 20100901
  Receipt Date: 20100824
  Transmission Date: 20110219
  Serious: Yes (Hospitalization)
  Sender: FDA-Public Use
  Company Number: PHHY2010AU50629

PATIENT
  Sex: Female

DRUGS (1)
  1. CLOZARIL [Suspect]
     Dosage: 125 MG
     Dates: start: 20010214

REACTIONS (7)
  - BACTERIAL SEPSIS [None]
  - CHOLECYSTITIS [None]
  - FOOD POISONING [None]
  - MALAISE [None]
  - NEUTROPENIA [None]
  - SEPSIS [None]
  - WHITE BLOOD CELL COUNT DECREASED [None]
